FAERS Safety Report 17015992 (Version 1)
Quarter: 2019Q4

REPORT INFORMATION
  Report Type: Spontaneous
  Country: CA (occurrence: CA)
  Receive Date: 20191111
  Receipt Date: 20191111
  Transmission Date: 20200122
  Serious: Yes (Other)
  Sender: FDA-Public Use
  Company Number: CA-OCTA-NGAM07319CA

PATIENT
  Age: 61 Year
  Sex: Male
  Weight: 85 kg

DRUGS (1)
  1. PANZYGA [Suspect]
     Active Substance: HUMAN IMMUNOGLOBULIN G
     Indication: MYASTHENIA GRAVIS
     Route: 042
     Dates: start: 20181122, end: 20181122

REACTIONS (10)
  - Acute pulmonary oedema [Recovered/Resolved]
  - Muscle spasms [Recovered/Resolved]
  - Cough [Recovered/Resolved]
  - Tachycardia [Recovered/Resolved]
  - Stridor [Recovered/Resolved]
  - Hyperhidrosis [Recovered/Resolved]
  - Dyspnoea [Recovered/Resolved]
  - Wheezing [Recovered/Resolved]
  - Tachypnoea [Recovered/Resolved]
  - Hypertension [Recovered/Resolved]

NARRATIVE: CASE EVENT DATE: 20181122
